FAERS Safety Report 8925096 (Version 1)
Quarter: 2012Q4

REPORT INFORMATION
  Report Type: 
  Country: US (occurrence: US)
  Receive Date: 20121126
  Receipt Date: 20121126
  Transmission Date: 20130627
  Serious: No
  Sender: FDA-Public Use
  Company Number: US-VERTEX PHARMACEUTICAL INC.-2012-024946

PATIENT
  Age: 51 Year
  Sex: Female
  Weight: 86 kg

DRUGS (9)
  1. VX-950 (TELAPREVIR) [Suspect]
     Indication: HEPATITIS C
     Dosage: 750 mg, tid
     Route: 048
  2. PEGASYS [Concomitant]
     Indication: HEPATITIS C
     Dosage: 180 ?g, UNK
  3. RIBAVIRIN [Concomitant]
     Indication: HEPATITIS C
     Dosage: 1000/day
  4. ISENTRESS [Concomitant]
     Dosage: 400 mg, UNK
  5. XANAX [Concomitant]
     Dosage: 1 mg, UNK
  6. ENALAPRIL [Concomitant]
     Dosage: 2.5 mg, UNK
  7. CITALOPRAM [Concomitant]
     Dosage: 20 mg, UNK
  8. TRUVADA [Concomitant]
  9. VALACYCLOVIR HYDROCHLORIDE [Concomitant]
     Dosage: 1 g, UNK

REACTIONS (5)
  - Irritability [Unknown]
  - Anxiety [Unknown]
  - Insomnia [Unknown]
  - Fatigue [Unknown]
  - Rash [Unknown]
